FAERS Safety Report 8474408-1 (Version None)
Quarter: 2012Q2

REPORT INFORMATION
  Report Type: 
  Country: None (occurrence: None)
  Receive Date: 20120628
  Receipt Date: 20120619
  Transmission Date: 20120825
  Serious: Yes (Other)
  Sender: FDA-Public Use
  Company Number: PHHY2012MX053969

PATIENT
  Sex: Male

DRUGS (3)
  1. CAROVOLAY [Concomitant]
     Indication: DEPRESSION
  2. EXELON [Suspect]
     Indication: DEMENTIA ALZHEIMER'S TYPE
     Dosage: 4.6 MG, PER DAY
     Route: 062
  3. EXELON [Suspect]
     Dosage: 9.5 MG, PER DAY
     Route: 062

REACTIONS (2)
  - HAEMATEMESIS [None]
  - RESPIRATORY ARREST [None]
